FAERS Safety Report 8492272 (Version 2)
Quarter: 2012Q4

REPORT INFORMATION
  Report Type: 
  Country: US (occurrence: US)
  Receive Date: 20120403
  Receipt Date: 20121129
  Transmission Date: 20130627
  Serious: Yes (Hospitalization)
  Sender: FDA-Public Use
  Company Number: US-GLAXOSMITHKLINE-A0903162A

PATIENT
  Sex: Male

DRUGS (1)
  1. AVANDIA [Suspect]
     Indication: DIABETES MELLITUS
     Dosage: 4MG Per day
     Route: 048
     Dates: start: 200403, end: 200703

REACTIONS (10)
  - Cerebrovascular accident [Not Recovered/Not Resolved]
  - Transient ischaemic attack [Unknown]
  - Portal vein thrombosis [Unknown]
  - Blindness [Unknown]
  - Blood disorder [Unknown]
  - Coronary artery disease [Unknown]
  - Anxiety [Unknown]
  - Depression [Unknown]
  - Hypertension [Unknown]
  - Myocardial infarction [Unknown]
